FAERS Safety Report 6749405-4 (Version None)
Quarter: 2010Q2

REPORT INFORMATION
  Report Type: 
  Country: None (occurrence: None)
  Receive Date: 20100601
  Receipt Date: 20100521
  Transmission Date: 20101027
  Serious: Yes (Other)
  Sender: FDA-Public Use
  Company Number: DE-ROCHE-701935

PATIENT
  Sex: Female
  Weight: 63 kg

DRUGS (3)
  1. HERCEPTIN [Suspect]
     Indication: BREAST CANCER
     Dosage: GIVEN FOR 12 WEEKS, LOADING DOSE WAS 266 MG
     Route: 042
     Dates: start: 20090615
  2. HERCEPTIN [Suspect]
     Dosage: GIVEN AS MONOTHERAPY
     Route: 042
     Dates: start: 20100325, end: 20100507
  3. LAPATINIB [Suspect]
     Indication: BREAST CANCER
     Route: 065
     Dates: end: 20100224

REACTIONS (5)
  - ALANINE AMINOTRANSFERASE INCREASED [None]
  - ASPARTATE AMINOTRANSFERASE INCREASED [None]
  - HAEMANGIOMA OF LIVER [None]
  - HEPATIC CYST [None]
  - HEPATOTOXICITY [None]
